FAERS Safety Report 18293969 (Version 1)
Quarter: 2020Q3

REPORT INFORMATION
  Report Type: Report from Study
  Country: None (occurrence: IL)
  Receive Date: 20200922
  Receipt Date: 20200922
  Transmission Date: 20201103
  Serious: Yes (Death)
  Sender: FDA-Public Use
  Company Number: IL-ABBVIE-20K-082-3575376-00

PATIENT
  Age: 76 Year
  Sex: Male
  Weight: 67 kg

DRUGS (9)
  1. VENETOCLAX. [Suspect]
     Active Substance: VENETOCLAX
     Indication: ACUTE MYELOID LEUKAEMIA
     Route: 048
     Dates: start: 20200718, end: 20200805
  2. BETARENE [Concomitant]
     Indication: ANALGESIC THERAPY
     Dates: start: 20110802, end: 202008
  3. AZACITIDINE. [Suspect]
     Active Substance: AZACITIDINE
     Indication: ACUTE MYELOID LEUKAEMIA
     Dosage: CYCLE 1, 140 MG
     Route: 058
     Dates: start: 20200718, end: 20200724
  4. CODICAL [Concomitant]
     Active Substance: CODEINE PHOSPHATE
     Indication: ANALGESIC THERAPY
     Dates: start: 20110616, end: 202008
  5. TRITACE [Concomitant]
     Active Substance: RAMIPRIL
     Indication: HYPERTENSION
     Dates: start: 20200511, end: 202008
  6. BETARENE [Concomitant]
     Indication: ANTIINFLAMMATORY THERAPY
  7. PAPAVERINE [Concomitant]
     Active Substance: PAPAVERINE
     Indication: MUSCLE SPASMS
     Dates: start: 20141121, end: 202008
  8. REOLIN [Concomitant]
     Indication: RESPIRATORY DISORDER
     Dates: start: 20121019, end: 202008
  9. LANTON [Concomitant]
     Indication: DYSPEPSIA
     Dates: start: 20130519, end: 202008

REACTIONS (1)
  - Sepsis [Fatal]

NARRATIVE: CASE EVENT DATE: 20200806
